FAERS Safety Report 6091159-1 (Version None)
Quarter: 2009Q1

REPORT INFORMATION
  Report Type: 
  Country: None (occurrence: None)
  Receive Date: 20090225
  Receipt Date: 20090212
  Transmission Date: 20090719
  Serious: Yes (Other)
  Sender: FDA-Public Use
  Company Number: US-PFIZER INC-2009172748

PATIENT
  Sex: Female
  Weight: 81.633 kg

DRUGS (3)
  1. CHANTIX [Suspect]
     Indication: SMOKING CESSATION THERAPY
     Dosage: 1 MG, 2X/DAY
     Route: 048
     Dates: start: 20090201, end: 20090211
  2. LAMICTAL [Concomitant]
     Dosage: UNK
     Route: 048
  3. EFFEXOR [Concomitant]
     Dosage: UNK
     Route: 048

REACTIONS (2)
  - MANIA [None]
  - SUICIDAL IDEATION [None]
